FAERS Safety Report 21096758 (Version 1)
Quarter: 2022Q3

REPORT INFORMATION
  Report Type: Spontaneous
  Country: JP (occurrence: JP)
  Receive Date: 20220718
  Receipt Date: 20220718
  Transmission Date: 20221027
  Serious: Yes (Other)
  Sender: FDA-Public Use
  Company Number: JP-ONO-2022JP014527

PATIENT

DRUGS (2)
  1. ONGENTYS [Suspect]
     Active Substance: OPICAPONE
     Indication: Parkinson^s disease
     Dosage: UNK, UNKNOWN
     Route: 048
     Dates: start: 20211028, end: 202112
  2. ONGENTYS [Suspect]
     Active Substance: OPICAPONE
     Dosage: UNK, UNKNOWN
     Route: 048
     Dates: start: 20211028, end: 202112

REACTIONS (1)
  - Tachycardia [Recovered/Resolved]

NARRATIVE: CASE EVENT DATE: 20211201
